FAERS Safety Report 16188348 (Version 1)
Quarter: 2019Q2

REPORT INFORMATION
  Report Type: Report from Study
  Country: CA (occurrence: CA)
  Receive Date: 20190412
  Receipt Date: 20190412
  Transmission Date: 20190711
  Serious: Yes (Other)
  Sender: FDA-Public Use
  Company Number: CA-GLAXOSMITHKLINE-CA2019GSK063898

PATIENT
  Sex: Female

DRUGS (2)
  1. MEPOLIZUMAB [Suspect]
     Active Substance: MEPOLIZUMAB
     Indication: ASTHMA
     Dosage: UNK
  2. VENTOLIN [Suspect]
     Active Substance: ALBUTEROL SULFATE
     Indication: PRODUCT USED FOR UNKNOWN INDICATION
     Dosage: UNK

REACTIONS (17)
  - Nasal cyst [Unknown]
  - Cerebrovascular disorder [Unknown]
  - Mitral valve incompetence [Unknown]
  - Pulmonary mass [Unknown]
  - Rhinitis [Unknown]
  - Cough [Unknown]
  - Periarthritis [Unknown]
  - Nasal congestion [Unknown]
  - Palpitations [Unknown]
  - Therapeutic product effect incomplete [Unknown]
  - Colitis ischaemic [Unknown]
  - Depression [Unknown]
  - Pneumonia [Unknown]
  - Sleep apnoea syndrome [Unknown]
  - Knee arthroplasty [Unknown]
  - Gastrooesophageal reflux disease [Unknown]
  - Dyspnoea [Unknown]
